FAERS Safety Report 9642623 (Version 2)
Quarter: 2013Q4

REPORT INFORMATION
  Report Type: Spontaneous
  Country: US (occurrence: US)
  Receive Date: 20131024
  Receipt Date: 20131113
  Transmission Date: 20140711
  Serious: No
  Sender: FDA-Public Use
  Company Number: US-PFIZER INC-2013299698

PATIENT
  Age: 68 Year
  Sex: Female
  Weight: 68.03 kg

DRUGS (5)
  1. ADVIL CONGESTION RELIEF [Suspect]
     Indication: SINUS CONGESTION
     Dosage: IBUPROFEN 200 MG/PHENYLEHRINE HCL 10 MG, TWO TIMES A DAY
     Dates: start: 20131009, end: 20131011
  2. ADVIL CONGESTION RELIEF [Suspect]
     Indication: SINUS HEADACHE
     Dosage: IBUPROFEN 200 MG/PHENYLEHRINE HCL 10 MG, ONCE A DAY
     Dates: start: 20131016, end: 20131017
  3. ADVIL CONGESTION RELIEF [Suspect]
     Indication: PAIN
  4. IBUPROFEN [Concomitant]
     Indication: ARTHRITIS
     Dosage: UNK, AS NEEDED
  5. SYNTHROID [Concomitant]
     Indication: THYROID DISORDER
     Dosage: UNK, ONCE A DAY

REACTIONS (3)
  - Feeling abnormal [Recovered/Resolved]
  - Local swelling [Recovered/Resolved]
  - Joint swelling [Recovered/Resolved]
